FAERS Safety Report 19617103 (Version 1)
Quarter: 2021Q3

REPORT INFORMATION
  Report Type: Spontaneous
  Country: US (occurrence: US)
  Receive Date: 20210727
  Receipt Date: 20210727
  Transmission Date: 20211014
  Serious: No
  Sender: FDA-Public Use
  Company Number: US-ABBVIE-20K-163-3527438-00

PATIENT
  Sex: Female

DRUGS (2)
  1. SYNTHROID [Suspect]
     Active Substance: LEVOTHYROXINE SODIUM
     Indication: PRODUCT USED FOR UNKNOWN INDICATION
     Route: 048
  2. RADIOACTIVE IODINE [Concomitant]
     Active Substance: SODIUM IODIDE I-131
     Indication: THYROID DISORDER

REACTIONS (6)
  - Drug intolerance [Recovered/Resolved]
  - Hypertension [Recovering/Resolving]
  - Hypersensitivity [Recovering/Resolving]
  - Sinus disorder [Recovering/Resolving]
  - Gastrooesophageal reflux disease [Recovering/Resolving]
  - Headache [Recovering/Resolving]
